FAERS Safety Report 8450496-3 (Version None)
Quarter: 2012Q2

REPORT INFORMATION
  Report Type: 
  Country: None (occurrence: None)
  Receive Date: 20120615
  Receipt Date: 20120615
  Transmission Date: 20120825
  Serious: Yes (Other)
  Sender: FDA-Public Use
  Company Number: None

PATIENT
  Sex: Male
  Weight: 61.6892 kg

DRUGS (1)
  1. BRIMONIDINE TARTRATE [Suspect]
     Indication: INTRAOCULAR PRESSURE INCREASED
     Dosage: 0.15% 5ML INSTILL 1 DROP IN LEFT EYE 3 TIMES DAILY

REACTIONS (2)
  - OCULAR HYPERAEMIA [None]
  - EYE SWELLING [None]
